FAERS Safety Report 10222520 (Version 1)
Quarter: 2014Q2

REPORT INFORMATION
  Report Type: Spontaneous
  Country: IT (occurrence: IT)
  Receive Date: 20140606
  Receipt Date: 20140606
  Transmission Date: 20141212
  Serious: Yes (Other)
  Sender: FDA-Public Use
  Company Number: IT-ACTAVIS-2013-25362

PATIENT
  Age: 84 Year
  Sex: Female

DRUGS (1)
  1. LETROZOLE [Suspect]
     Indication: BREAST CANCER
     Dosage: 2.5 MG, DAILY
     Route: 048
     Dates: start: 20130910, end: 20131001

REACTIONS (3)
  - Gravitational oedema [Recovering/Resolving]
  - Hypertensive crisis [Recovering/Resolving]
  - Tachycardia [Recovering/Resolving]
